FAERS Safety Report 13663429 (Version 1)
Quarter: 2017Q2

REPORT INFORMATION
  Report Type: Spontaneous
  Country: US (occurrence: US)
  Receive Date: 20170617
  Receipt Date: 20170617
  Transmission Date: 20170830
  Serious: Yes (Death, Life-Threatening, Hospitalization, Other)
  Sender: FDA-Public Use
  Company Number: None

PATIENT
  Age: 67 Year
  Sex: Male
  Weight: 73 kg

DRUGS (12)
  1. PROMETHAZINE [Concomitant]
     Active Substance: PROMETHAZINE\PROMETHAZINE HYDROCHLORIDE
  2. LATANPROST [Concomitant]
     Active Substance: LATANOPROST
  3. NOVOLOG [Concomitant]
     Active Substance: INSULIN ASPART
  4. ASPRIN [Concomitant]
     Active Substance: ASPIRIN
  5. CARVEDILOL. [Concomitant]
     Active Substance: CARVEDILOL
  6. RENVELA [Concomitant]
     Active Substance: SEVELAMER CARBONATE
  7. WARFARIN [Concomitant]
     Active Substance: WARFARIN
  8. VANCOMYCIN [Suspect]
     Active Substance: VANCOMYCIN
     Indication: SURGERY
     Route: 058
     Dates: start: 20170501, end: 20170501
  9. DIALIVITE [Concomitant]
  10. BRIMONIDINE [Concomitant]
     Active Substance: BRIMONIDINE TARTRATE
  11. SENSIPAR [Concomitant]
     Active Substance: CINACALCET HYDROCHLORIDE
  12. SIMVASTATIN. [Concomitant]
     Active Substance: SIMVASTATIN

REACTIONS (3)
  - Urethral disorder [None]
  - Rash [None]
  - International normalised ratio increased [None]

NARRATIVE: CASE EVENT DATE: 20170501
